FAERS Safety Report 21851560 (Version 1)
Quarter: 2023Q1

REPORT INFORMATION
  Report Type: Spontaneous
  Country: IN (occurrence: IN)
  Receive Date: 20230112
  Receipt Date: 20230112
  Transmission Date: 20230418
  Serious: Yes (Other)
  Sender: FDA-Public Use
  Company Number: IN-STERISCIENCE B.V.-2023-ST-000049

PATIENT

DRUGS (5)
  1. BUPIVACAINE [Suspect]
     Active Substance: BUPIVACAINE
     Indication: Product used for unknown indication
     Dosage: PATIENT MOTHER DOSE WAS 0.5% OF 1.8 ML
     Route: 064
  2. DEXAMETHASONE [Suspect]
     Active Substance: DEXAMETHASONE
     Indication: Heart block congenital
     Dosage: PATIENT MOTHER DOSE WAS 4 MG/DAY
     Route: 064
  3. ALBUTEROL [Suspect]
     Active Substance: ALBUTEROL
     Indication: Heart block congenital
     Dosage: PATIENT MOTHER DOSE WAS4MG THREE TIMES/DAY
     Route: 064
  4. POTASSIUM CHLORIDE [Suspect]
     Active Substance: POTASSIUM CHLORIDE
     Indication: Product used for unknown indication
     Dosage: PATIENT MOTHER DOSE WAS10ML SYRUP THREE TIMES/DAY
     Route: 064
  5. FENTANYL [Suspect]
     Active Substance: FENTANYL
     Indication: Product used for unknown indication
     Dosage: PATIENT MOTHER DOSE WAS 10 MICROGRAM
     Route: 064

REACTIONS (3)
  - Premature baby [Unknown]
  - Bradycardia neonatal [Unknown]
  - Foetal exposure during pregnancy [Unknown]
